FAERS Safety Report 12818101 (Version 5)
Quarter: 2016Q4

REPORT INFORMATION
  Report Type: Spontaneous
  Country: US (occurrence: US)
  Receive Date: 20161005
  Receipt Date: 20161212
  Transmission Date: 20170207
  Serious: No
  Sender: FDA-Public Use
  Company Number: US-PFIZER INC-2016437492

PATIENT
  Age: 71 Year
  Sex: Female

DRUGS (13)
  1. CLONAZEPAM. [Concomitant]
     Active Substance: CLONAZEPAM
     Indication: ANXIETY
     Dosage: (1/2-1 TABLET ), AS NEEDED, (QDAY )
     Route: 048
     Dates: start: 20150622
  2. AZULFIDINE EN-TABS [Concomitant]
     Active Substance: SULFASALAZINE
     Dosage: 500 MG, 2X/DAY
     Route: 048
  3. PERCOCET [Concomitant]
     Active Substance: ACETAMINOPHEN\OXYCODONE HYDROCHLORIDE
     Dosage: UNK UNK, DAILY [OXYCODONE:5MG]/[ACETAMINOPHEN:325 MG]
     Route: 048
  4. VENTOLIN HFA [Concomitant]
     Active Substance: ALBUTEROL SULFATE
     Indication: DYSPNOEA
     Dosage: 2 DF, AS NEEDED,(EVERY 4-6 HRS PRN SOB )
     Route: 055
     Dates: start: 20160427
  5. VENLAFAXINE HCL [Concomitant]
     Active Substance: VENLAFAXINE HYDROCHLORIDE
     Dosage: 150 MG, 1X/DAY, (WITH FOOD )
     Route: 048
  6. ALBUTEROL SULFATE. [Concomitant]
     Active Substance: ALBUTEROL SULFATE
     Indication: DYSPNOEA
     Dosage: 3 ML, AS NEEDED, (0.63 MG/3ML NEBULIZATION SOLUTION) (INHALATION EVERY 6 HRS PRN SOB)
     Route: 055
  7. OMEPRAZOLE. [Concomitant]
     Active Substance: OMEPRAZOLE
     Dosage: 20 MG, 1X/DAY
     Route: 048
  8. CYCLOBENZAPRINE HCL [Concomitant]
     Active Substance: CYCLOBENZAPRINE HYDROCHLORIDE
     Indication: PAIN IN EXTREMITY
     Dosage: 10 MG, AS NEEDED(QHS)
     Route: 048
     Dates: start: 20160722
  9. TRAZODONE HYDROCHLORIDE. [Concomitant]
     Active Substance: TRAZODONE HYDROCHLORIDE
     Dosage: (1-2 TABLETS AT BEDTIME/MAY INCREASE TO 2 QHS IF NEEDED ), AS NEEDED
     Route: 048
     Dates: start: 20150622
  10. LYRICA [Suspect]
     Active Substance: PREGABALIN
     Indication: NEUROPATHY PERIPHERAL
     Dosage: 2 DF, DAILY
  11. LYRICA [Suspect]
     Active Substance: PREGABALIN
     Indication: MONONEUROPATHY
     Dosage: 150 MG, 2X/DAY
     Route: 048
  12. SIMVASTATIN. [Concomitant]
     Active Substance: SIMVASTATIN
     Dosage: 40 MG, 1X/DAY
     Route: 048
  13. ADVAIR DISKUS [Concomitant]
     Active Substance: FLUTICASONE PROPIONATE\SALMETEROL XINAFOATE
     Dosage: 1 DF, 2X/DAY, [FLUTICASONE:250MCG]/[SALMETEROL:50 MCG]
     Route: 055

REACTIONS (2)
  - Intentional underdose [Unknown]
  - Drug ineffective [Unknown]
